FAERS Safety Report 7734669-0 (Version None)
Quarter: 2011Q3

REPORT INFORMATION
  Report Type: 
  Country: None (occurrence: None)
  Receive Date: 20110907
  Receipt Date: 20110902
  Transmission Date: 20111222
  Serious: Yes (Hospitalization)
  Sender: FDA-Public Use
  Company Number: US-MERCK-1107USA00018

PATIENT
  Age: 50 Year
  Sex: Female
  Weight: 65 kg

DRUGS (18)
  1. CALCIUM (UNSPECIFIED) [Concomitant]
     Route: 065
     Dates: start: 19970101
  2. [THERAPY UNSPECIFIED] [Concomitant]
     Dosage: BLOOD PRESSURE MEDICATION
     Route: 065
  3. ASPIRIN [Concomitant]
     Route: 065
     Dates: start: 20091101
  4. ALLEGRA [Concomitant]
     Route: 065
     Dates: start: 20090101
  5. CALCIUM (UNSPECIFIED) AND VITAMIN D (UNSPECIFIED) [Concomitant]
     Route: 065
  6. FOSAMAX [Suspect]
     Route: 048
     Dates: start: 20010401, end: 20110122
  7. CENTRUM SILVER [Concomitant]
     Dosage: 1 DAILY
     Route: 065
     Dates: start: 19970101
  8. VITAMIN D (UNSPECIFIED) [Concomitant]
     Route: 065
     Dates: start: 19970101
  9. ESTRACE [Concomitant]
     Route: 065
  10. VIVACTIL [Concomitant]
     Route: 065
  11. FOSAMAX [Suspect]
     Route: 048
     Dates: start: 20010401, end: 20110122
  12. FOSAMAX [Suspect]
     Indication: OSTEOPENIA
     Route: 048
     Dates: start: 19970701, end: 20010406
  13. HYDROCHLOROTHIAZIDE [Concomitant]
     Route: 065
     Dates: start: 20101201
  14. FOSAMAX [Suspect]
     Indication: OSTEOPOROSIS
     Route: 048
     Dates: start: 19970701, end: 20010406
  15. NEXIUM [Concomitant]
     Route: 065
  16. TENORMIN [Concomitant]
     Route: 065
  17. SINGULAIR [Concomitant]
     Route: 048
     Dates: start: 20090101
  18. PROVERA [Concomitant]
     Route: 065

REACTIONS (17)
  - MUSCLE SPASMS [None]
  - SLEEP DISORDER [None]
  - FEMUR FRACTURE [None]
  - HYPOTENSION [None]
  - SLEEP APNOEA SYNDROME [None]
  - BLOOD CHOLESTEROL INCREASED [None]
  - TOOTH IMPACTED [None]
  - FOOT DEFORMITY [None]
  - CERVICAL DYSPLASIA [None]
  - METRORRHAGIA [None]
  - VAGINAL HAEMORRHAGE [None]
  - LIBIDO DECREASED [None]
  - COLONIC POLYP [None]
  - FUNGAL INFECTION [None]
  - HAND FRACTURE [None]
  - GASTRITIS [None]
  - PAIN IN JAW [None]
